FAERS Safety Report 6440318-4 (Version None)
Quarter: 2009Q4

REPORT INFORMATION
  Report Type: 
  Country: None (occurrence: None)
  Receive Date: 20091113
  Receipt Date: 20091110
  Transmission Date: 20100525
  Serious: Yes (Other)
  Sender: FDA-Public Use
  Company Number: IN-ROXANE LABORATORIES, INC.-2009-RO-01152RO

PATIENT
  Age: 60 Year
  Sex: Male

DRUGS (8)
  1. ONDANSETRON [Suspect]
     Indication: PREMEDICATION
     Dosage: 4 MG
     Route: 042
  2. GLYCOPYRROLATE [Suspect]
     Indication: PREMEDICATION
     Route: 042
  3. ATROPINE [Concomitant]
     Indication: BRADYCARDIA
     Dosage: 0.6 MG
     Route: 042
  4. ATROPINE [Concomitant]
     Indication: RESPIRATORY ARREST
  5. ATROPINE [Concomitant]
     Indication: LOSS OF CONSCIOUSNESS
  6. OXYGEN [Concomitant]
     Indication: BRADYCARDIA
  7. OXYGEN [Concomitant]
     Indication: RESPIRATORY ARREST
  8. OXYGEN [Concomitant]
     Indication: LOSS OF CONSCIOUSNESS

REACTIONS (3)
  - BRADYCARDIA [None]
  - LOSS OF CONSCIOUSNESS [None]
  - RESPIRATORY ARREST [None]
